FAERS Safety Report 9823076 (Version 2)
Quarter: 2014Q1

REPORT INFORMATION
  Report Type: Spontaneous
  Country: CA (occurrence: CA)
  Receive Date: 20140116
  Receipt Date: 20140116
  Transmission Date: 20141002
  Serious: Yes (Hospitalization)
  Sender: FDA-Public Use
  Company Number: CA-BAXTER-2013BAX053825

PATIENT
  Age: 89 Year
  Sex: Female

DRUGS (3)
  1. DIANEAL PD4 SOLUTION WITH 1.5% DEXTROSE AND 2.5 MEQ/L CALCIUM [Suspect]
     Indication: PERITONEAL DIALYSIS
     Route: 033
  2. EXTRANEAL [Suspect]
     Indication: PERITONEAL DIALYSIS
     Route: 033
  3. OXYCODONE [Suspect]
     Indication: HERPES ZOSTER

REACTIONS (4)
  - Herpes zoster [Recovering/Resolving]
  - Stress [Recovering/Resolving]
  - Vomiting [Unknown]
  - Vomiting [Recovering/Resolving]
